FAERS Safety Report 7602533-3 (Version None)
Quarter: 2011Q3

REPORT INFORMATION
  Report Type: 
  Country: None (occurrence: None)
  Receive Date: 20110701
  Receipt Date: 20110616
  Transmission Date: 20111222
  Serious: Yes (Death, Other)
  Sender: FDA-Public Use
  Company Number: UCM201105-000009

PATIENT
  Age: 33 Year
  Sex: Female

DRUGS (1)
  1. TOPIRAMATE [Suspect]
     Indication: POST-TRAUMATIC EPILEPSY

REACTIONS (10)
  - SHOCK [None]
  - MULTI-ORGAN FAILURE [None]
  - BAND NEUTROPHIL COUNT INCREASED [None]
  - CONTINUOUS HAEMODIAFILTRATION [None]
  - METABOLIC ACIDOSIS [None]
  - GRAND MAL CONVULSION [None]
  - LEUKOCYTOSIS [None]
  - OLIGURIA [None]
  - RHABDOMYOLYSIS [None]
  - NEUTROPHIL COUNT INCREASED [None]
